FAERS Safety Report 15019060 (Version 1)
Quarter: 2018Q2

REPORT INFORMATION
  Report Type: Spontaneous
  Country: US (occurrence: US)
  Receive Date: 20180616
  Receipt Date: 20180616
  Transmission Date: 20180711
  Serious: No
  Sender: FDA-Public Use
  Company Number: US-009507513-1805USA014417

PATIENT
  Age: 25 Year
  Sex: Female
  Weight: 64.4 kg

DRUGS (1)
  1. NUVARING [Suspect]
     Active Substance: ETHINYL ESTRADIOL\ETONOGESTREL
     Indication: CONTRACEPTION
     Dosage: 1 RING FOR 3 WEEKS INSIDE THEN 1 WEEK BREAK
     Route: 067
     Dates: start: 2015

REACTIONS (1)
  - Menstruation delayed [Unknown]
